FAERS Safety Report 7704422-2 (Version None)
Quarter: 2011Q3

REPORT INFORMATION
  Report Type: 
  Country: None (occurrence: None)
  Receive Date: 20110823
  Receipt Date: 20110818
  Transmission Date: 20111222
  Serious: Yes (Hospitalization)
  Sender: FDA-Public Use
  Company Number: JP-EISAI INC-E2090-01685-SPO-JP

PATIENT
  Sex: Male

DRUGS (15)
  1. ISOSORBIDE DINITRATE [Concomitant]
  2. KREMEZIN [Concomitant]
  3. MAGNESIUM SULFATE [Concomitant]
  4. THEOLONG [Concomitant]
  5. PHENYTOIN SODIUM CAP [Suspect]
     Dosage: UNKNOWN
     Route: 048
     Dates: start: 20110613, end: 20110629
  6. LASIX [Concomitant]
  7. SIGMART [Concomitant]
  8. BISOLVON [Concomitant]
  9. ARGAMATE [Concomitant]
     Route: 048
  10. ZONISAMIDE [Suspect]
     Indication: EPILEPSY
     Dosage: 200 MG DAILY
     Route: 048
     Dates: start: 20110630, end: 20110707
  11. LANSOPRAZOLE [Suspect]
     Indication: GASTRIC ULCER
     Route: 048
     Dates: start: 20110314, end: 20110624
  12. PLAVIX [Suspect]
     Indication: MYOCARDIAL INFARCTION
     Route: 048
     Dates: start: 20110319, end: 20110519
  13. LOPRESSOR [Concomitant]
  14. ASPIRIN [Concomitant]
  15. CONIEL [Concomitant]

REACTIONS (1)
  - AGRANULOCYTOSIS [None]
